FAERS Safety Report 25383502 (Version 2)
Quarter: 2025Q2

REPORT INFORMATION
  Report Type: Report from Study
  Country: US (occurrence: US)
  Receive Date: 20250602
  Receipt Date: 20250613
  Transmission Date: 20250716
  Serious: Yes (Other)
  Sender: AVADEL CNS PHARMACEUTICALS, LLC
  Company Number: US-AVADEL CNS PHARMACEUTICALS, LLC-2025AVA01305

PATIENT
  Age: 40 Year
  Sex: Female
  Weight: 88.889 kg

DRUGS (5)
  1. LUMRYZ [Suspect]
     Active Substance: SODIUM OXYBATE
     Indication: Narcolepsy
     Dosage: 4.5 G, ONCE NIGHTLY AT BEDTIME
     Route: 048
     Dates: start: 202505, end: 202505
  2. LUMRYZ [Suspect]
     Active Substance: SODIUM OXYBATE
     Indication: Narcolepsy
     Dosage: 6 G, ONCE NIGHTLY AT BEDTIME
     Route: 048
     Dates: start: 202505, end: 20250517
  3. LUMRYZ [Suspect]
     Active Substance: SODIUM OXYBATE
     Dosage: 4.5 G (MEASURED OUT FROM 6 G PACKET), ONCE NIGHTLY AT BEDTIME
     Route: 048
     Dates: start: 20250520
  4. UNSPECIFIED INGREDIENT [Concomitant]
     Active Substance: UNSPECIFIED INGREDIENT
  5. SKYRIZI [Concomitant]
     Active Substance: RISANKIZUMAB-RZAA

REACTIONS (23)
  - Loss of consciousness [Unknown]
  - Fatigue [Unknown]
  - Middle insomnia [Recovering/Resolving]
  - Abnormal dreams [Unknown]
  - Brain fog [Recovered/Resolved]
  - Crying [Unknown]
  - Heart rate increased [Unknown]
  - Performance status decreased [Recovered/Resolved]
  - Withdrawal syndrome [Unknown]
  - Urinary tract infection [Recovered/Resolved]
  - Sleep inertia [Recovered/Resolved]
  - Dehydration [Recovered/Resolved]
  - Nocturia [Recovering/Resolving]
  - Somnolence [Recovering/Resolving]
  - Dizziness [Recovered/Resolved]
  - Headache [Recovered/Resolved]
  - Nausea [Recovered/Resolved]
  - Confusional state [Recovered/Resolved]
  - Anxiety [Recovering/Resolving]
  - Panic attack [Recovered/Resolved]
  - Emotional disorder [Recovered/Resolved]
  - Blood pressure increased [Recovered/Resolved]
  - Wrong technique in product usage process [Unknown]

NARRATIVE: CASE EVENT DATE: 20250501
